FAERS Safety Report 6478380-5 (Version None)
Quarter: 2009Q4

REPORT INFORMATION
  Report Type: 
  Country: None (occurrence: None)
  Receive Date: 20091207
  Receipt Date: 20091126
  Transmission Date: 20100525
  Serious: Yes (Other)
  Sender: FDA-Public Use
  Company Number: PHHY2009RU46429

PATIENT
  Sex: Female

DRUGS (1)
  1. RASILEZ [Suspect]
     Dosage: 150 MG DAILY

REACTIONS (4)
  - DECREASED INTEREST [None]
  - DEPRESSION [None]
  - HEADACHE [None]
  - MOOD ALTERED [None]
